FAERS Safety Report 21691911 (Version 2)
Quarter: 2022Q4

REPORT INFORMATION
  Report Type: Spontaneous
  Country: CA (occurrence: CA)
  Receive Date: 20221207
  Receipt Date: 20221224
  Transmission Date: 20230113
  Serious: Yes (Other)
  Sender: FDA-Public Use
  Company Number: CA-CELLTRION INC.-2022CA010768

PATIENT

DRUGS (8)
  1. INFLECTRA [Suspect]
     Active Substance: INFLIXIMAB-DYYB
     Indication: Colitis ulcerative
     Dosage: 1 DF, EVERY 4 WEEKS- DOSE UNKNOWN - RECEIVED IN HOSPITAL
     Route: 042
     Dates: start: 20220616, end: 20220616
  2. INFLECTRA [Suspect]
     Active Substance: INFLIXIMAB-DYYB
     Dosage: 1000 MG, INDUCTION DOSES AT WEEK 2 AND 6, THEN EVERY 8 WEEKS
     Route: 042
     Dates: start: 20220629, end: 20220919
  3. INFLECTRA [Suspect]
     Active Substance: INFLIXIMAB-DYYB
     Dosage: 1000 MG,  INDUCTION DOSES AT WEEK 2 AND 6, THEN EVERY 8 WEEKS
     Route: 042
     Dates: start: 20220729, end: 20220729
  4. INFLECTRA [Suspect]
     Active Substance: INFLIXIMAB-DYYB
     Dosage: 1000 MG, INDUCTION DOSES AT WEEK 2 AND 6, THEN EVERY 8 WEEKS
     Route: 042
     Dates: start: 20220919, end: 20220919
  5. INFLECTRA [Suspect]
     Active Substance: INFLIXIMAB-DYYB
     Dosage: 1000 MG, EVERY 4 WEEK
     Route: 042
     Dates: start: 20221114, end: 20221114
  6. CHOLESTYRAMINE [Concomitant]
     Active Substance: CHOLESTYRAMINE
     Dosage: UNK
  7. ELIQUIS [Concomitant]
     Active Substance: APIXABAN
     Dosage: UNK
  8. TAMSULOSIN [Concomitant]
     Active Substance: TAMSULOSIN
     Dosage: UNK

REACTIONS (9)
  - Condition aggravated [Recovering/Resolving]
  - Weight increased [Unknown]
  - Off label use [Unknown]
  - Off label use [Unknown]
  - Off label use [Unknown]
  - Intentional product use issue [Unknown]
  - Inappropriate schedule of product administration [Unknown]
  - Weight decreased [Unknown]
  - Back pain [Not Recovered/Not Resolved]

NARRATIVE: CASE EVENT DATE: 20220101
